FAERS Safety Report 5154609-0 (Version None)
Quarter: 2006Q4

REPORT INFORMATION
  Report Type: 
  Country: None (occurrence: None)
  Receive Date: 20061113
  Receipt Date: 20061102
  Transmission Date: 20070319
  Serious: Yes (Hospitalization)
  Sender: FDA-Public Use
  Company Number: MEDI-0004288

PATIENT
  Age: 7 Month
  Weight: 4 kg

DRUGS (5)
  1. SYNAGIS [Suspect]
     Indication: ANTIVIRAL PROPHYLAXIS
     Dosage: 1 IN 1 M, INTRAMUSCULAR; SEE IMAGE
     Route: 030
     Dates: start: 20051016, end: 20051115
  2. SYNAGIS [Suspect]
     Indication: ANTIVIRAL PROPHYLAXIS
     Dosage: 1 IN 1 M, INTRAMUSCULAR; SEE IMAGE
     Route: 030
     Dates: start: 20051016
  3. SYNAGIS [Suspect]
     Indication: ANTIVIRAL PROPHYLAXIS
     Dosage: 1 IN 1 M, INTRAMUSCULAR; SEE IMAGE
     Route: 030
     Dates: start: 20051213
  4. SYNAGIS [Suspect]
     Indication: ANTIVIRAL PROPHYLAXIS
     Dosage: 1 IN 1 M, INTRAMUSCULAR; SEE IMAGE
     Route: 030
     Dates: start: 20060112
  5. SYNAGIS [Suspect]
     Indication: ANTIVIRAL PROPHYLAXIS
     Dosage: 1 IN 1 M, INTRAMUSCULAR; SEE IMAGE
     Route: 030
     Dates: start: 20060209

REACTIONS (2)
  - GASTROENTERITIS [None]
  - LARYNGITIS [None]
